FAERS Safety Report 15530604 (Version 3)
Quarter: 2019Q3

REPORT INFORMATION
  Report Type: Spontaneous
  Country: SK (occurrence: SK)
  Receive Date: 20181018
  Receipt Date: 20190923
  Transmission Date: 20191004
  Serious: Yes (Other)
  Sender: FDA-Public Use
  Company Number: SK-ALLERGAN-1849764US

PATIENT
  Sex: Female
  Weight: 68 kg

DRUGS (7)
  1. BOTULINUM TOXIN TYPE A UNK [Interacting]
     Active Substance: BOTULINUM TOXIN TYPE A
     Dosage: UNK UNK, SINGLE
     Route: 030
     Dates: start: 20180925, end: 20180925
  2. BOTULINUM TOXIN TYPE A UNK [Suspect]
     Active Substance: BOTULINUM TOXIN TYPE A
     Indication: PRODUCT USED FOR UNKNOWN INDICATION
     Dosage: UNK UNK, SINGLE
     Route: 030
     Dates: start: 20181014, end: 20181014
  3. BOTULINUM TOXIN TYPE B [Interacting]
     Active Substance: RIMABOTULINUMTOXINB
     Indication: PRODUCT USED FOR UNKNOWN INDICATION
     Dosage: UNK UNK, SINGLE
     Route: 030
     Dates: start: 20181014, end: 20181014
  4. CORVATON [Concomitant]
     Active Substance: MOLSIDOMINE
     Indication: PRODUCT USED FOR UNKNOWN INDICATION
     Dosage: UNK
     Route: 065
  5. BOTULINUM TOXIN TYPE B [Interacting]
     Active Substance: RIMABOTULINUMTOXINB
     Dosage: UNK, SINGLE
     Route: 065
     Dates: start: 20180925, end: 20180925
  6. ATOZET [Interacting]
     Active Substance: ATORVASTATIN CALCIUM\EZETIMIBE
     Indication: PRODUCT USED FOR UNKNOWN INDICATION
     Dosage: UNK
     Route: 048
     Dates: start: 201701
  7. LODOZ [Concomitant]
     Active Substance: BISOPROLOL FUMARATE\HYDROCHLOROTHIAZIDE
     Indication: PRODUCT USED FOR UNKNOWN INDICATION
     Dosage: UNK
     Route: 065

REACTIONS (3)
  - Paresis [Not Recovered/Not Resolved]
  - Facial spasm [Not Recovered/Not Resolved]
  - Drug interaction [Unknown]

NARRATIVE: CASE EVENT DATE: 2018
